FAERS Safety Report 13516699 (Version 5)
Quarter: 2017Q3

REPORT INFORMATION
  Report Type: Report from Study
  Country: US (occurrence: US)
  Receive Date: 20170505
  Receipt Date: 20170807
  Transmission Date: 20171127
  Serious: Yes (Hospitalization, Other)
  Sender: FDA-Public Use
  Company Number: US-GILEAD-2017-0271337

PATIENT
  Age: 66 Year
  Sex: Female

DRUGS (4)
  1. AMBRISENTAN [Suspect]
     Active Substance: AMBRISENTAN
     Indication: PULMONARY ARTERIAL HYPERTENSION
     Dosage: 10 MG, QD
     Route: 065
     Dates: start: 20150410
  2. ADCIRCA [Concomitant]
     Active Substance: TADALAFIL
  3. AMBRISENTAN [Suspect]
     Active Substance: AMBRISENTAN
     Indication: MIXED CONNECTIVE TISSUE DISEASE
  4. REMODULIN [Concomitant]
     Active Substance: TREPROSTINIL

REACTIONS (9)
  - Pulmonary mycosis [Not Recovered/Not Resolved]
  - Asthma [Recovered/Resolved]
  - Ocular discomfort [Unknown]
  - Dyspnoea [Unknown]
  - Swelling face [Unknown]
  - Lower respiratory tract infection bacterial [Not Recovered/Not Resolved]
  - Lung infection [Recovered/Resolved]
  - Epistaxis [Unknown]
  - Pulmonary arterial hypertension [Unknown]
